FAERS Safety Report 20108052 (Version 2)
Quarter: 2021Q4

REPORT INFORMATION
  Report Type: Spontaneous
  Country: US (occurrence: US)
  Receive Date: 20211124
  Receipt Date: 20211216
  Transmission Date: 20220303
  Serious: Yes (Death, Hospitalization, Other)
  Sender: FDA-Public Use
  Company Number: US-009507513-2111USA006631

PATIENT
  Sex: Male

DRUGS (7)
  1. KEYTRUDA [Suspect]
     Active Substance: PEMBROLIZUMAB
     Indication: Lung neoplasm malignant
     Dosage: 200 MILLIGRAM, UNK
     Route: 042
     Dates: start: 20210726, end: 20210726
  2. ALIMTA [Suspect]
     Active Substance: PEMETREXED DISODIUM
     Indication: Cancer pain
     Dosage: 500 MILLIGRAM, UNK
     Dates: start: 2021
  3. ALIMTA [Suspect]
     Active Substance: PEMETREXED DISODIUM
     Dosage: 400 MILLIGRAM, UNK
     Dates: start: 2021
  4. CARBOPLATIN [Suspect]
     Active Substance: CARBOPLATIN
     Indication: Cancer pain
     Dosage: UNK
     Dates: start: 2021
  5. ALOXI [Concomitant]
     Active Substance: PALONOSETRON HYDROCHLORIDE
     Dosage: UNK
  6. DEXAMETHASONE [Concomitant]
     Active Substance: DEXAMETHASONE
  7. LOVASTATIN [Concomitant]
     Active Substance: LOVASTATIN

REACTIONS (3)
  - Death [Fatal]
  - Dyspnoea [Unknown]
  - Malignant neoplasm progression [Unknown]

NARRATIVE: CASE EVENT DATE: 20210101
